FAERS Safety Report 25365469 (Version 1)
Quarter: 2025Q2

REPORT INFORMATION
  Report Type: Spontaneous
  Country: FR (occurrence: FR)
  Receive Date: 20250527
  Receipt Date: 20250527
  Transmission Date: 20250717
  Serious: Yes (Other)
  Sender: CIPLA
  Company Number: FR-AFSSAPS-MA2025000287

PATIENT

DRUGS (2)
  1. RIVAROXABAN [Interacting]
     Active Substance: RIVAROXABAN
     Indication: Vascular disorder prophylaxis
     Dosage: 20 MILLIGRAM, QD
     Route: 048
  2. OZEMPIC [Interacting]
     Active Substance: SEMAGLUTIDE
     Indication: Type 2 diabetes mellitus
     Dosage: 1 MILLIGRAM, QWK
     Route: 058
     Dates: start: 20241029

REACTIONS (2)
  - Coagulation time shortened [Recovered/Resolved]
  - Drug interaction [Not Recovered/Not Resolved]

NARRATIVE: CASE EVENT DATE: 20241114
